FAERS Safety Report 25604216 (Version 1)
Quarter: 2025Q3

REPORT INFORMATION
  Report Type: Other
  Country: CA (occurrence: CA)
  Receive Date: 20250725
  Receipt Date: 20250725
  Transmission Date: 20251021
  Serious: Yes (Other)
  Sender: APOTEX
  Company Number: CA-PGRTD-001133857

PATIENT
  Age: 72 Year
  Sex: Male

DRUGS (8)
  1. DOXYCYCLINE [Suspect]
     Active Substance: DOXYCYCLINE
     Route: 065
  2. PREDNISONE [Suspect]
     Active Substance: PREDNISONE
     Route: 065
  3. COLCHICINE [Suspect]
     Active Substance: COLCHICINE
     Route: 065
  4. DAPSONE [Suspect]
     Active Substance: DAPSONE
     Route: 065
  5. DOVONEX [Suspect]
     Active Substance: CALCIPOTRIENE
     Route: 065
  6. ISOTRETINOIN [Suspect]
     Active Substance: ISOTRETINOIN
     Route: 048
  7. MOMETASONE FUROATE [Suspect]
     Active Substance: MOMETASONE FUROATE
     Route: 061
  8. PROTOPIC [Suspect]
     Active Substance: TACROLIMUS
     Route: 065

REACTIONS (1)
  - Basal cell carcinoma [Unknown]
